FAERS Safety Report 10637411 (Version 1)
Quarter: 2014Q4

REPORT INFORMATION
  Report Type: Spontaneous
  Country: US (occurrence: None)
  Receive Date: 20141204
  Receipt Date: 20141204
  Transmission Date: 20150529
  Serious: Yes (Death, Hospitalization)
  Sender: FDA-Public Use
  Company Number: None

PATIENT
  Age: 7 Month
  Sex: Male
  Weight: 8.03 kg

DRUGS (3)
  1. CYTARABINE. [Suspect]
     Active Substance: CYTARABINE
     Dates: end: 20141121
  2. DAUNORUBICIN [Suspect]
     Active Substance: DAUNORUBICIN
     Dates: end: 20141114
  3. ETOPOSIDE. [Suspect]
     Active Substance: ETOPOSIDE

REACTIONS (11)
  - Shock [None]
  - Neutropenia [None]
  - Disseminated intravascular coagulation [None]
  - Pneumonia pseudomonal [None]
  - Pulmonary haemorrhage [None]
  - Generalised oedema [None]
  - Cardiac arrest [None]
  - Respiratory failure [None]
  - Haemodialysis [None]
  - Acute kidney injury [None]
  - Haemodynamic instability [None]

NARRATIVE: CASE EVENT DATE: 20141122
